FAERS Safety Report 26107681 (Version 1)
Quarter: 2025Q4

REPORT INFORMATION
  Report Type: Spontaneous
  Country: US (occurrence: None)
  Receive Date: 20251130
  Receipt Date: 20251130
  Transmission Date: 20260118
  Serious: Yes (Death, Life-Threatening, Hospitalization)
  Sender: FDA-CTU
  Company Number: None

PATIENT
  Age: 43 Year
  Sex: Female
  Weight: 65.25 kg

DRUGS (1)
  1. WEGOVY [Suspect]
     Active Substance: SEMAGLUTIDE
     Indication: Weight decreased

REACTIONS (7)
  - Depression [None]
  - Anxiety [None]
  - Paranoia [None]
  - Libido increased [None]
  - Suicidal ideation [None]
  - Blood pressure increased [None]
  - Delusion [None]

NARRATIVE: CASE EVENT DATE: 20251023
